FAERS Safety Report 25336631 (Version 1)
Quarter: 2025Q2

REPORT INFORMATION
  Report Type: Report from Study
  Country: US (occurrence: US)
  Receive Date: 20250520
  Receipt Date: 20250520
  Transmission Date: 20250717
  Serious: Yes (Other)
  Sender: LEO PHARM
  Company Number: US-LEO Pharma-379326

PATIENT
  Age: 47 Year
  Sex: Female

DRUGS (2)
  1. ADBRY [Suspect]
     Active Substance: TRALOKINUMAB-LDRM
     Indication: Dermatitis atopic
     Route: 058
     Dates: start: 20250408
  2. ADBRY [Suspect]
     Active Substance: TRALOKINUMAB-LDRM
     Indication: Dermatitis atopic
     Route: 058
     Dates: end: 20250421

REACTIONS (2)
  - Gastritis [Unknown]
  - Colitis [Unknown]

NARRATIVE: CASE EVENT DATE: 20250410
